FAERS Safety Report 15588265 (Version 2)
Quarter: 2018Q4

REPORT INFORMATION
  Report Type: Spontaneous
  Country: CA (occurrence: CA)
  Receive Date: 20181105
  Receipt Date: 20181105
  Transmission Date: 20190205
  Serious: No
  Sender: FDA-Public Use
  Company Number: CA-JAZZ-2018-CA-014770

PATIENT

DRUGS (1)
  1. XYREM [Suspect]
     Active Substance: SODIUM OXYBATE
     Indication: PRODUCT USED FOR UNKNOWN INDICATION
     Dosage: UNKNOWN DOSE, FREQUENCY, DURATION
     Route: 048

REACTIONS (1)
  - Drug diversion [Unknown]

NARRATIVE: CASE EVENT DATE: 2017
